FAERS Safety Report 16176434 (Version 1)
Quarter: 2019Q2

REPORT INFORMATION
  Report Type: Spontaneous
  Country: US (occurrence: US)
  Receive Date: 20190409
  Receipt Date: 20190409
  Transmission Date: 20190711
  Serious: No
  Sender: FDA-Public Use
  Company Number: US-GLAXOSMITHKLINE-US2019060558

PATIENT

DRUGS (1)
  1. FLONASE ALLERGY RELIEF [Suspect]
     Active Substance: FLUTICASONE PROPIONATE
     Indication: HYPERSENSITIVITY
     Dosage: UNK

REACTIONS (8)
  - Hypersensitivity [Unknown]
  - Drug ineffective [Unknown]
  - Facial pain [Unknown]
  - Toothache [Unknown]
  - Sinusitis [Unknown]
  - Gingival pain [Unknown]
  - Rhinalgia [Unknown]
  - Eye pain [Unknown]
